FAERS Safety Report 8513428 (Version 4)
Quarter: 2013Q1

REPORT INFORMATION
  Report Type: Spontaneous
  Country: JP (occurrence: JP)
  Receive Date: 20120416
  Receipt Date: 20130319
  Transmission Date: 20140127
  Serious: Yes (Hospitalization)
  Sender: FDA-Public Use
  Company Number: JP-PFIZER INC-2012087823

PATIENT
  Age: 79 Year
  Sex: Male
  Weight: 63.8 kg

DRUGS (8)
  1. DETRUSITOL [Suspect]
     Indication: POLLAKIURIA
     Dosage: 2 MG, 1X/DAY
     Route: 048
     Dates: start: 20111111, end: 20120226
  2. AVOLVE [Suspect]
     Indication: BENIGN PROSTATIC HYPERPLASIA
     Dosage: 0.5 MG, 1X/DAY
     Route: 048
     Dates: start: 20110716, end: 20120226
  3. BAYASPIRIN [Concomitant]
     Dosage: UNK
     Route: 048
     Dates: end: 20120222
  4. OLMETEC [Concomitant]
     Dosage: UNK
     Route: 048
     Dates: end: 20120216
  5. FLIVAS [Concomitant]
     Dosage: UNK
     Route: 048
     Dates: end: 20120222
  6. LAFUTIDINE [Concomitant]
     Dosage: UNK
     Route: 048
     Dates: end: 20120222
  7. CLARITIN [Concomitant]
     Dosage: UNK
     Route: 048
     Dates: end: 20120215
  8. ARICEPT [Concomitant]
     Dosage: UNK
     Route: 048

REACTIONS (1)
  - Platelet count decreased [Recovering/Resolving]
